FAERS Safety Report 17366793 (Version 1)
Quarter: 2020Q1

REPORT INFORMATION
  Report Type: Spontaneous
  Country: US (occurrence: US)
  Receive Date: 20200204
  Receipt Date: 20200204
  Transmission Date: 20200409
  Serious: Yes (Other)
  Sender: FDA-Public Use
  Company Number: US-MEDEXUS PHARMA, INC.-2019MED00268

PATIENT
  Age: 12 Year
  Sex: Female
  Weight: 40.82 kg

DRUGS (2)
  1. RASUVO [Suspect]
     Active Substance: METHOTREXATE SODIUM
     Indication: JUVENILE IDIOPATHIC ARTHRITIS
     Dosage: 25 MG, 1X/WEEK ON TUESDAYS INJECTED INTO THIGH (ALTERNATES LEGS EVERY OTHER WEEK)
     Dates: start: 201905
  2. OMEPRAZOLE. [Concomitant]
     Active Substance: OMEPRAZOLE
     Dosage: UNK, AS NEEDED

REACTIONS (10)
  - Pain in extremity [Recovering/Resolving]
  - Musculoskeletal disorder [Recovered/Resolved]
  - Injection site discomfort [Recovered/Resolved]
  - Joint effusion [Unknown]
  - Screaming [Recovered/Resolved]
  - Crying [Recovered/Resolved]
  - Nausea [Not Recovered/Not Resolved]
  - Vomiting [Recovered/Resolved]
  - Haemorrhagic ovarian cyst [Recovered/Resolved]
  - Bursal fluid accumulation [Unknown]

NARRATIVE: CASE EVENT DATE: 2019
